FAERS Safety Report 7120237-0 (Version None)
Quarter: 2010Q4

REPORT INFORMATION
  Report Type: 
  Country: None (occurrence: None)
  Receive Date: 20101123
  Receipt Date: 20101119
  Transmission Date: 20110411
  Serious: Yes (Hospitalization)
  Sender: FDA-Public Use
  Company Number: US-AMGEN-KDC427994

PATIENT
  Sex: Male

DRUGS (20)
  1. PANITUMUMAB [Suspect]
     Indication: COLORECTAL CANCER
     Dosage: 556 MG, Q2WK
     Route: 042
     Dates: start: 20100421, end: 20100616
  2. FOLINIC ACID [Suspect]
     Dosage: 400 MG/M2, Q2WK
     Route: 042
     Dates: start: 20100421
  3. FLUOROURACIL [Suspect]
     Dosage: UNK UNK, Q2WK
     Route: 042
     Dates: start: 20100421
  4. OXALIPLATIN [Suspect]
     Dosage: 85 MG/M2, Q2WK
     Route: 042
     Dates: start: 20100421
  5. CYCLOBENZAPRINE HCL [Concomitant]
  6. DOXYCYCLINE HYCLATE [Concomitant]
  7. LORAZEPAM [Concomitant]
  8. IRON SULFATETHIAMIN COMPOUND TAB [Concomitant]
  9. OXYCODONE HCL [Concomitant]
  10. ONDANSETRON HYDROCHLORIDE [Concomitant]
  11. LISINOPRIL [Concomitant]
  12. MAGNESIUM [Concomitant]
     Dosage: 2 G, Q2WK
     Route: 042
     Dates: start: 20100421
  13. MULTI-VITAMINS [Concomitant]
  14. FENTANYL [Concomitant]
  15. APREPITANT [Concomitant]
  16. GRANISETRON HCL [Concomitant]
  17. PALONOSETRON HYDROCHLORIDE [Concomitant]
     Dosage: 925 MG, Q2WK
     Route: 042
     Dates: start: 20100421
  18. DEXAMETHASONE [Concomitant]
     Dosage: 10 MG, Q2WK
     Route: 042
     Dates: start: 20100421
  19. CALCIUM GLUCONATE [Concomitant]
     Dosage: 2 G, Q2WK
     Route: 042
     Dates: start: 20100421
  20. UNSPECIFIED STEROIDS [Concomitant]

REACTIONS (3)
  - ABDOMINAL PAIN [None]
  - COLITIS [None]
  - RASH GENERALISED [None]
